FAERS Safety Report 24814800 (Version 1)
Quarter: 2025Q1

REPORT INFORMATION
  Report Type: Spontaneous
  Country: NZ (occurrence: None)
  Receive Date: 20250106
  Receipt Date: 20250106
  Transmission Date: 20250409
  Serious: Yes (Disabling)
  Sender: FDA-CTU
  Company Number: None

PATIENT
  Age: 29 Year
  Sex: Male
  Weight: 70 kg

DRUGS (1)
  1. ZOLOFT [Suspect]
     Active Substance: SERTRALINE HYDROCHLORIDE
     Indication: Adjustment disorder with depressed mood
     Dates: start: 20211101, end: 20230619

REACTIONS (5)
  - Genital hypoaesthesia [None]
  - Blunted affect [None]
  - Loss of libido [None]
  - Ejaculation disorder [None]
  - Emotional poverty [None]

NARRATIVE: CASE EVENT DATE: 20230619
